FAERS Safety Report 5012015-3 (Version None)
Quarter: 2006Q2

REPORT INFORMATION
  Report Type: 
  Country: None (occurrence: None)
  Receive Date: 20060524
  Receipt Date: 20060516
  Transmission Date: 20061013
  Serious: Yes (Death, Hospitalization, Other)
  Sender: FDA-Public Use
  Company Number: 163-21880-06040444

PATIENT
  Age: 80 Year
  Sex: Male
  Weight: 78.0187 kg

DRUGS (7)
  1. REVLIMID [Suspect]
     Indication: MYELODYSPLASTIC SYNDROME
     Dosage: 5 MG, QD, ORAL
     Route: 048
     Dates: start: 20060330, end: 20060401
  2. VERAPAMIL [Concomitant]
  3. DIGOXIN [Concomitant]
  4. PRIOSEL [Concomitant]
  5. PREDNISONE TAB [Concomitant]
  6. AMICAR [Concomitant]
  7. PANCREASE (PANCRELIPASE) [Concomitant]

REACTIONS (3)
  - BODY TEMPERATURE INCREASED [None]
  - DISEASE PROGRESSION [None]
  - LEUKAEMIA [None]
